FAERS Safety Report 12565206 (Version 1)
Quarter: 2016Q3

REPORT INFORMATION
  Report Type: Spontaneous
  Country: US (occurrence: US)
  Receive Date: 20160718
  Receipt Date: 20160718
  Transmission Date: 20161109
  Serious: No
  Sender: FDA-Public Use
  Company Number: US-PFIZER INC-2016340694

PATIENT
  Sex: Male

DRUGS (1)
  1. CRIZOTINIB [Suspect]
     Active Substance: CRIZOTINIB
     Indication: METASTATIC SALIVARY GLAND CANCER
     Dosage: UNK

REACTIONS (3)
  - Metastatic salivary gland cancer [Unknown]
  - Disease progression [Unknown]
  - Product use issue [Unknown]
